FAERS Safety Report 5152400-2 (Version None)
Quarter: 2006Q4

REPORT INFORMATION
  Report Type: 
  Country: None (occurrence: None)
  Receive Date: 20061109
  Receipt Date: 20061025
  Transmission Date: 20070319
  Serious: Yes (Life-Threatening, Hospitalization)
  Sender: FDA-Public Use
  Company Number: 2006-264

PATIENT
  Age: 66 Year
  Sex: Female

DRUGS (2)
  1. CARBOPLATIN [Suspect]
     Indication: OVARIAN CANCER
     Dosage: 560MG PER DAY, IV
     Route: 042
     Dates: start: 20060816, end: 20060816
  2. TAXOL [Concomitant]

REACTIONS (4)
  - FLUSHING [None]
  - HYPERHIDROSIS [None]
  - TACHYCARDIA [None]
  - VOMITING [None]
